FAERS Safety Report 5067599-6 (Version None)
Quarter: 2006Q3

REPORT INFORMATION
  Report Type: 
  Country: None (occurrence: None)
  Receive Date: 20060717
  Receipt Date: 20060518
  Transmission Date: 20061208
  Serious: Yes (Other)
  Sender: FDA-Public Use
  Company Number: 2006019707

PATIENT
  Sex: Female

DRUGS (5)
  1. MACUGEN [Suspect]
     Indication: ILL-DEFINED DISORDER
  2. MELOXICAM (MELOXICAM) [Concomitant]
  3. POVIDONE IODINE [Concomitant]
  4. PHENYLBUTAZONE (PHENYLBUTAZONE) [Concomitant]
  5. ALL OTHER THERAPEUTIC PRODUCTS (ALL OTHER THERAPEUTIC PRODUCTS) [Concomitant]

REACTIONS (1)
  - HYPERSENSITIVITY [None]
